FAERS Safety Report 8635610 (Version 4)
Quarter: 2012Q4

REPORT INFORMATION
  Report Type: Report from Study
  Country: US (occurrence: US)
  Receive Date: 20120626
  Receipt Date: 20121116
  Transmission Date: 20130627
  Serious: Yes (Death, Other)
  Sender: FDA-Public Use
  Company Number: US-ABBOTT-12P-163-0949252-00

PATIENT
  Age: 65 Year
  Sex: Female
  Weight: 90.8 kg

DRUGS (11)
  1. HUMIRA [Suspect]
     Indication: PSORIASIS
     Route: 058
     Dates: start: 20101014, end: 20101014
  2. HUMIRA [Suspect]
     Route: 058
     Dates: start: 20101125, end: 20120313
  3. VERAPAMIL [Concomitant]
     Indication: MIGRAINE
     Dates: start: 2000, end: 2012
  4. FENOFIBRATE [Concomitant]
     Indication: HYPERLIPIDAEMIA
     Dates: start: 2000, end: 2012
  5. LAMOTRIGINE [Concomitant]
     Indication: AFFECTIVE DISORDER
     Dates: start: 1990, end: 2012
  6. ABILIFY [Concomitant]
     Indication: AFFECTIVE DISORDER
     Dates: start: 1990, end: 2012
  7. AZITHROMYCIN [Concomitant]
     Indication: PRODUCT USED FOR UNKNOWN INDICATION
     Dates: start: 20120313, end: 20120622
  8. ATARAX [Concomitant]
     Indication: PSORIASIS
     Dates: start: 20111214, end: 20120502
  9. ADVAIR [Concomitant]
     Indication: RESPIRATORY DISORDER
     Dosage: 1 inhalation 250-50 mcg/dose
     Dates: start: 20120313, end: 20120502
  10. TYLENOL WITH CODEIN #3 [Concomitant]
     Indication: PAIN
     Dosage: 300-30 mg tab
     Route: 048
     Dates: start: 2012, end: 20120502
  11. PREDNISONE [Concomitant]
     Indication: RESPIRATORY DISORDER
     Dosage: taper
     Dates: start: 20120313, end: 20120502

REACTIONS (1)
  - Sarcoma [Fatal]
